FAERS Safety Report 23663070 (Version 1)
Quarter: 2024Q1

REPORT INFORMATION
  Report Type: Spontaneous
  Country: US (occurrence: US)
  Receive Date: 20240322
  Receipt Date: 20240322
  Transmission Date: 20240409
  Serious: No
  Sender: FDA-Public Use
  Company Number: US-BIOVITRUM-2024-US-004499

PATIENT
  Age: 5 Month
  Sex: Male
  Weight: 5.89 kg

DRUGS (3)
  1. SYNAGIS [Suspect]
     Active Substance: PALIVIZUMAB
     Indication: Illness
     Dosage: 15 MG/KG ONCE A MONTH
     Route: 030
     Dates: start: 20231211
  2. EUCERIN BABY ECZEMA RELIEF [Concomitant]
     Indication: Product used for unknown indication
  3. POLY-VI-FLOR WITH IRON [Concomitant]
     Indication: Product used for unknown indication

REACTIONS (5)
  - Eczema [Not Recovered/Not Resolved]
  - Intentional product misuse [Unknown]
  - Influenza [Not Recovered/Not Resolved]
  - Nasal congestion [Not Recovered/Not Resolved]
  - Product dose omission issue [Unknown]

NARRATIVE: CASE EVENT DATE: 20240209
